FAERS Safety Report 6232966-1 (Version None)
Quarter: 2009Q2

REPORT INFORMATION
  Report Type: 
  Country: None (occurrence: None)
  Receive Date: 20090617
  Receipt Date: 20090616
  Transmission Date: 20091009
  Serious: Yes (Other)
  Sender: FDA-Public Use
  Company Number: GB-ASTRAZENECA-2009GB01337

PATIENT
  Age: 48 Year
  Sex: Male

DRUGS (3)
  1. QUETIAPINE FUMARATE [Suspect]
     Indication: BIPOLAR DISORDER
     Dosage: 800 MG
     Route: 048
     Dates: start: 20090320, end: 20090521
  2. LITHIUM CARBONATE [Concomitant]
     Indication: BIPOLAR DISORDER
     Dosage: 1200 MG
     Route: 048
     Dates: start: 20080807
  3. OLANZAPINE [Concomitant]
     Indication: BIPOLAR DISORDER
     Dosage: 5 MG
     Route: 048
     Dates: start: 20090505

REACTIONS (2)
  - LEUKOPENIA [None]
  - NEUTROPENIA [None]
